FAERS Safety Report 10163549 (Version 4)
Quarter: 2017Q3

REPORT INFORMATION
  Report Type: Report from Study
  Country: MX (occurrence: MX)
  Receive Date: 20140509
  Receipt Date: 20170802
  Transmission Date: 20171127
  Serious: Yes (Other)
  Sender: FDA-Public Use
  Company Number: PHHY2014MX054965

PATIENT
  Sex: Female

DRUGS (17)
  1. GALVUS MET [Suspect]
     Active Substance: METFORMIN HYDROCHLORIDE\VILDAGLIPTIN
     Dosage: 2.5 DF (500 MG METF/ 50 MG VILD), DAILY (ONE IN MORNINGS AND NIGHTS AND A HALF IN AFTERNOON) QD
     Route: 048
     Dates: start: 201401
  2. AVIX [Concomitant]
     Indication: PRODUCT USED FOR UNKNOWN INDICATION
     Route: 065
  3. VESSEL DUE-F [Concomitant]
     Indication: PRODUCT USED FOR UNKNOWN INDICATION
     Route: 065
  4. CALTRATE [Concomitant]
     Active Substance: CALCIUM CARBONATE
     Indication: PRODUCT USED FOR UNKNOWN INDICATION
     Route: 065
  5. DIOVAN [Concomitant]
     Active Substance: VALSARTAN
     Indication: PRODUCT USED FOR UNKNOWN INDICATION
     Dosage: 320 OT, UNK
     Route: 065
  6. LAXIT [Concomitant]
     Indication: PRODUCT USED FOR UNKNOWN INDICATION
     Route: 065
  7. ZYLOPRIM [Concomitant]
     Active Substance: ALLOPURINOL
     Indication: PRODUCT USED FOR UNKNOWN INDICATION
     Route: 065
  8. GALVUS MET [Suspect]
     Active Substance: METFORMIN HYDROCHLORIDE\VILDAGLIPTIN
     Dosage: 2 DF, QD (500/50 MG)
     Route: 048
     Dates: start: 2012
  9. LANOXIN [Concomitant]
     Active Substance: DIGOXIN
     Indication: PRODUCT USED FOR UNKNOWN INDICATION
     Route: 065
  10. GALVUS MET [Suspect]
     Active Substance: METFORMIN HYDROCHLORIDE\VILDAGLIPTIN
     Indication: BLOOD GLUCOSE INCREASED
     Dosage: 1 DF, QD
     Route: 048
  11. GALVUS MET [Suspect]
     Active Substance: METFORMIN HYDROCHLORIDE\VILDAGLIPTIN
     Dosage: 2 DF (850MG METFORMIN/50MG VILDAGLIPTIN), QD
     Route: 065
  12. GALVUS MET [Suspect]
     Active Substance: METFORMIN HYDROCHLORIDE\VILDAGLIPTIN
     Dosage: 1.5 DF (850 MG METFORMIN, 50 MG VILDAGLIPTIN), QD
     Route: 065
     Dates: start: 201703
  13. AXIS [Concomitant]
     Indication: PRODUCT USED FOR UNKNOWN INDICATION
     Route: 065
  14. GALVUS MET [Suspect]
     Active Substance: METFORMIN HYDROCHLORIDE\VILDAGLIPTIN
     Indication: GLUCOSE TOLERANCE IMPAIRED
     Dosage: 2.5 DF (1 MORNING, 1 NIGHT AND HALF IN AFTERNOON), QD
     Route: 048
  15. GALVUS MET [Suspect]
     Active Substance: METFORMIN HYDROCHLORIDE\VILDAGLIPTIN
     Dosage: 3 DF, QD (500/50 MG)
     Route: 048
  16. EUTIROX [Concomitant]
     Active Substance: LEVOTHYROXINE SODIUM
     Indication: PRODUCT USED FOR UNKNOWN INDICATION
     Route: 065
  17. EXFORGE [Concomitant]
     Active Substance: AMLODIPINE BESYLATE\VALSARTAN
     Indication: BLOOD PRESSURE INCREASED
     Dosage: STARTED 3 MONTHS AGO
     Route: 048

REACTIONS (9)
  - Blood glucose increased [Unknown]
  - Drug prescribing error [Not Recovered/Not Resolved]
  - Product use in unapproved indication [Not Recovered/Not Resolved]
  - Dizziness [Not Recovered/Not Resolved]
  - Diabetes mellitus inadequate control [Recovered/Resolved]
  - Cardiac failure [Not Recovered/Not Resolved]
  - Blood triglycerides abnormal [Not Recovered/Not Resolved]
  - Wrong technique in product usage process [Not Recovered/Not Resolved]
  - Incorrect dose administered [Not Recovered/Not Resolved]

NARRATIVE: CASE EVENT DATE: 2012
